FAERS Safety Report 5601379-5 (Version None)
Quarter: 2008Q1

REPORT INFORMATION
  Report Type: 
  Country: None (occurrence: None)
  Receive Date: 20080110
  Receipt Date: 20070910
  Transmission Date: 20080703
  Serious: Yes (Hospitalization)
  Sender: FDA-Public Use
  Company Number: 20070910VANCO0317

PATIENT
  Age: 90 Year
  Sex: Female

DRUGS (1)
  1. VANCOMYCIN [Suspect]
     Indication: CLOSTRIDIAL INFECTION
     Dosage: ORAL
     Route: 048

REACTIONS (1)
  - DRUG INEFFECTIVE [None]
